FAERS Safety Report 19668476 (Version 2)
Quarter: 2021Q3

REPORT INFORMATION
  Report Type: Spontaneous
  Country: JP (occurrence: JP)
  Receive Date: 20210806
  Receipt Date: 20210826
  Transmission Date: 20211014
  Serious: Yes (Hospitalization)
  Sender: FDA-Public Use
  Company Number: JP-MALLINCKRODT PHARMACEUTICALS-T202103518

PATIENT
  Age: 53 Year
  Sex: Male

DRUGS (4)
  1. CAFFEINE MONOHYDRATE [Concomitant]
     Active Substance: CAFFEINE
     Indication: PYREXIA
     Dosage: UNK (SEVERAL CONSECUTIVE DAYS)
     Route: 065
  2. OFIRMEV [Suspect]
     Active Substance: ACETAMINOPHEN
     Indication: PYREXIA
     Dosage: UNK (CONCENTRATION: 1000 MG)
     Route: 042
  3. OFIRMEV [Suspect]
     Active Substance: ACETAMINOPHEN
     Indication: ANTIPYRESIS
  4. ETHENZAMIDE [Concomitant]
     Active Substance: ETHENZAMIDE
     Indication: PYREXIA
     Dosage: UNK, (SEVERAL CONSECUTIVE DAYS)
     Route: 065

REACTIONS (1)
  - Drug reaction with eosinophilia and systemic symptoms [Recovering/Resolving]
